FAERS Safety Report 20566921 (Version 1)
Quarter: 2022Q1

REPORT INFORMATION
  Report Type: Spontaneous
  Country: FR (occurrence: FR)
  Receive Date: 20220308
  Receipt Date: 20220308
  Transmission Date: 20220423
  Serious: Yes (Death, Other)
  Sender: FDA-Public Use
  Company Number: None

PATIENT
  Age: 45 Year
  Sex: Male
  Weight: 136 kg

DRUGS (3)
  1. OPDIVO [Suspect]
     Active Substance: NIVOLUMAB
     Indication: Malignant melanoma stage IV
     Dosage: 480 MILLIGRAM, Q4WK
     Route: 041
     Dates: start: 20200117, end: 20210118
  2. BRAFTOVI [Suspect]
     Active Substance: ENCORAFENIB
     Indication: Malignant melanoma stage IV
     Dosage: 6 DF (DOSAGE FORM), 1 DAY TIME INTERVAL
     Route: 048
     Dates: start: 20210204, end: 20210923
  3. MEKTOVI [Suspect]
     Active Substance: BINIMETINIB
     Indication: Malignant melanoma stage IV
     Dosage: 3 DF (DOSAGE FORM), 12 HOURS TIME INTERVAL
     Route: 048
     Dates: start: 20210204, end: 20210923

REACTIONS (1)
  - Death [Fatal]

NARRATIVE: CASE EVENT DATE: 20220109
